FAERS Safety Report 17420702 (Version 5)
Quarter: 2021Q3

REPORT INFORMATION
  Report Type: Spontaneous
  Country: US (occurrence: US)
  Receive Date: 20200214
  Receipt Date: 20210831
  Transmission Date: 20211014
  Serious: No
  Sender: FDA-Public Use
  Company Number: US-PFIZER INC-2018168385

PATIENT
  Age: 68 Year
  Sex: Female

DRUGS (1)
  1. XELJANZ XR [Suspect]
     Active Substance: TOFACITINIB CITRATE
     Indication: RHEUMATOID ARTHRITIS
     Dosage: 11 MG, 1X/DAY
     Route: 048

REACTIONS (8)
  - Eye disorder [Unknown]
  - Neuralgia [Unknown]
  - Breast mass [Unknown]
  - Bradykinesia [Unknown]
  - Fatigue [Unknown]
  - Headache [Unknown]
  - Hypoacusis [Unknown]
  - Ear disorder [Unknown]

NARRATIVE: CASE EVENT DATE: 20210315
